FAERS Safety Report 8617648-0 (Version None)
Quarter: 2012Q3

REPORT INFORMATION
  Report Type: 
  Country: None (occurrence: None)
  Receive Date: 20120824
  Receipt Date: 20120117
  Transmission Date: 20120928
  Serious: No
  Sender: FDA-Public Use
  Company Number: US-ASTRAZENECA-2011SE76285

PATIENT
  Age: 75 Year
  Sex: Female
  Weight: 88.9 kg

DRUGS (3)
  1. SYMBICORT [Suspect]
     Dosage: 4 PUFFS A DAY
     Route: 055
  2. SYMBICORT [Suspect]
     Route: 055
  3. SYMBICORT [Suspect]
     Dosage: 2 PUFFS A DAY
     Route: 055

REACTIONS (3)
  - DYSPNOEA [None]
  - INCORRECT DOSE ADMINISTERED [None]
  - COUGH [None]
